FAERS Safety Report 9922610 (Version 2)
Quarter: 2014Q1

REPORT INFORMATION
  Report Type: Spontaneous
  Country: JP (occurrence: JP)
  Receive Date: 20140225
  Receipt Date: 20140307
  Transmission Date: 20141002
  Serious: Yes (Hospitalization)
  Sender: FDA-Public Use
  Company Number: JP-TAKEDA-2014TJP001774

PATIENT
  Age: 63 Year
  Sex: Male

DRUGS (3)
  1. TAKEPRON CAPSULES 30 [Suspect]
     Dosage: UNK
     Route: 048
  2. NINJIN-TO [Suspect]
     Dosage: UNK
     Route: 048
  3. ASPIRIN [Suspect]
     Dosage: UNK
     Route: 048

REACTIONS (4)
  - Colitis microscopic [Unknown]
  - Hypoalbuminaemia [Recovering/Resolving]
  - Hypokalaemia [Recovering/Resolving]
  - Asthenia [Recovering/Resolving]
